FAERS Safety Report 24123871 (Version 2)
Quarter: 2024Q3

REPORT INFORMATION
  Report Type: Spontaneous
  Country: US (occurrence: US)
  Receive Date: 20240723
  Receipt Date: 20240808
  Transmission Date: 20241017
  Serious: No
  Sender: OTSUKA
  Company Number: US-OTSUKA-2023_033728

PATIENT
  Sex: Male
  Weight: 117.93 kg

DRUGS (25)
  1. REXULTI [Suspect]
     Active Substance: BREXPIPRAZOLE
     Indication: Depression
     Dosage: 1 MG
     Route: 065
  2. REXULTI [Suspect]
     Active Substance: BREXPIPRAZOLE
     Indication: Anxiety
     Dosage: 0.5 MG
     Route: 065
  3. REXULTI [Suspect]
     Active Substance: BREXPIPRAZOLE
     Indication: Obsessive-compulsive disorder
  4. REXULTI [Suspect]
     Active Substance: BREXPIPRAZOLE
     Indication: Intrusive thoughts
  5. REXULTI [Suspect]
     Active Substance: BREXPIPRAZOLE
     Indication: Crying
  6. ABILIFY [Suspect]
     Active Substance: ARIPIPRAZOLE
     Indication: Depression
     Dosage: UNK
     Route: 065
  7. ABILIFY [Suspect]
     Active Substance: ARIPIPRAZOLE
     Indication: Obsessive-compulsive disorder
  8. ABILIFY [Suspect]
     Active Substance: ARIPIPRAZOLE
     Indication: Anxiety
  9. ABILIFY [Suspect]
     Active Substance: ARIPIPRAZOLE
     Indication: Intrusive thoughts
  10. ABILIFY [Suspect]
     Active Substance: ARIPIPRAZOLE
     Indication: Crying
  11. SERTRALINE [Suspect]
     Active Substance: SERTRALINE HYDROCHLORIDE
     Indication: Depression
     Dosage: 200 MG
     Route: 065
  12. SERTRALINE [Suspect]
     Active Substance: SERTRALINE HYDROCHLORIDE
     Indication: Anxiety
  13. SERTRALINE [Suspect]
     Active Substance: SERTRALINE HYDROCHLORIDE
     Indication: Obsessive-compulsive disorder
  14. SERTRALINE [Suspect]
     Active Substance: SERTRALINE HYDROCHLORIDE
     Indication: Intrusive thoughts
  15. SERTRALINE [Suspect]
     Active Substance: SERTRALINE HYDROCHLORIDE
     Indication: Crying
  16. TRINTELLIX [Suspect]
     Active Substance: VORTIOXETINE HYDROBROMIDE
     Indication: Depression
     Dosage: UNK
     Route: 065
  17. TRINTELLIX [Suspect]
     Active Substance: VORTIOXETINE HYDROBROMIDE
     Indication: Obsessive-compulsive disorder
  18. TRINTELLIX [Suspect]
     Active Substance: VORTIOXETINE HYDROBROMIDE
     Indication: Anxiety
  19. TRINTELLIX [Suspect]
     Active Substance: VORTIOXETINE HYDROBROMIDE
     Indication: Intrusive thoughts
  20. TRINTELLIX [Suspect]
     Active Substance: VORTIOXETINE HYDROBROMIDE
     Indication: Crying
  21. OXCARBAZEPINE [Suspect]
     Active Substance: OXCARBAZEPINE
     Indication: Depression
     Dosage: 300 MG, QD (AT NIGHT)
     Route: 065
  22. OXCARBAZEPINE [Suspect]
     Active Substance: OXCARBAZEPINE
     Indication: Obsessive-compulsive disorder
  23. OXCARBAZEPINE [Suspect]
     Active Substance: OXCARBAZEPINE
     Indication: Anxiety
  24. OXCARBAZEPINE [Suspect]
     Active Substance: OXCARBAZEPINE
     Indication: Intrusive thoughts
  25. OXCARBAZEPINE [Suspect]
     Active Substance: OXCARBAZEPINE
     Indication: Crying

REACTIONS (2)
  - Dry mouth [Unknown]
  - Off label use [Unknown]
